FAERS Safety Report 15742314 (Version 2)
Quarter: 2018Q4

REPORT INFORMATION
  Report Type: Spontaneous
  Country: US (occurrence: US)
  Receive Date: 20181219
  Receipt Date: 20181224
  Transmission Date: 20190205
  Serious: Yes (Other)
  Sender: FDA-Public Use
  Company Number: US-PFIZER INC-2018514110

PATIENT
  Age: 66 Year
  Sex: Female
  Weight: 61.22 kg

DRUGS (2)
  1. PREMARIN [Suspect]
     Active Substance: ESTROGENS, CONJUGATED
     Indication: VULVOVAGINAL DRYNESS
     Dosage: 1 G, 2X/WEEK
     Route: 067
  2. CLIMARA [Suspect]
     Active Substance: ESTRADIOL

REACTIONS (2)
  - Benign neoplasm [Unknown]
  - Breast mass [Unknown]
